FAERS Safety Report 25674750 (Version 4)
Quarter: 2025Q4

REPORT INFORMATION
  Report Type: Report from Study
  Country: US (occurrence: US)
  Receive Date: 20250813
  Receipt Date: 20251021
  Transmission Date: 20260118
  Serious: No
  Sender: BIOVITRUM
  Company Number: US-BIOVITRUM-2025-US-000237

PATIENT
  Age: 67 Year
  Sex: Male

DRUGS (8)
  1. DOPTELET [Suspect]
     Active Substance: AVATROMBOPAG MALEATE
     Indication: Immune thrombocytopenia
     Dosage: DAILY
     Route: 048
     Dates: start: 20241218
  2. DOPTELET [Suspect]
     Active Substance: AVATROMBOPAG MALEATE
     Dosage: DAILY
     Route: 048
     Dates: start: 202412
  3. DOPTELET [Suspect]
     Active Substance: AVATROMBOPAG MALEATE
     Dosage: 200 MG A DAY
     Route: 048
  4. DOPTELET [Suspect]
     Active Substance: AVATROMBOPAG MALEATE
     Dosage: INCREASED DOSAGE
     Route: 048
  5. DOPTELET [Suspect]
     Active Substance: AVATROMBOPAG MALEATE
     Dosage: TAKE 1 TABLET BY MOUTH 5 TIMES A WEEK
     Route: 048
  6. DOPTELET [Suspect]
     Active Substance: AVATROMBOPAG MALEATE
     Dosage: TAKE 1 TABLET BY MOUTH 5 TIMES A WEEK
     Route: 048
     Dates: start: 20241218
  7. LYRICA [Suspect]
     Active Substance: PREGABALIN
     Indication: Back pain
     Dosage: ONCE DAILY
  8. LYRICA [Suspect]
     Active Substance: PREGABALIN
     Indication: Neuralgia
     Dosage: DAILY

REACTIONS (16)
  - Rhinorrhoea [Recovering/Resolving]
  - Headache [Unknown]
  - Back pain [Unknown]
  - Neuralgia [Unknown]
  - Platelet count abnormal [Unknown]
  - Neck pain [Unknown]
  - Kidney enlargement [Unknown]
  - Blood calcium decreased [Unknown]
  - Sciatica [Not Recovered/Not Resolved]
  - Product dose omission issue [Unknown]
  - Adverse drug reaction [Unknown]
  - Blister [Unknown]
  - Platelet count decreased [Recovering/Resolving]
  - Polyp [Not Recovered/Not Resolved]
  - Intentional dose omission [Unknown]
  - Bronchitis [Unknown]
